FAERS Safety Report 13501575 (Version 2)
Quarter: 2017Q2

REPORT INFORMATION
  Report Type: Report from Study
  Country: US (occurrence: US)
  Receive Date: 20170501
  Receipt Date: 20170515
  Transmission Date: 20170830
  Serious: Yes (Other)
  Sender: FDA-Public Use
  Company Number: US-GILEAD-2017-0270100

PATIENT
  Age: 68 Year
  Sex: Female

DRUGS (3)
  1. LEDIPASVIR/SOFOSBUVIR [Suspect]
     Active Substance: LEDIPASVIR\SOFOSBUVIR
     Indication: HEPATITIS C
     Dosage: UNK
     Route: 048
     Dates: start: 20110101, end: 20110401
  2. LEDIPASVIR/SOFOSBUVIR [Suspect]
     Active Substance: LEDIPASVIR\SOFOSBUVIR
     Dosage: 3 DF, TID
     Route: 048
     Dates: start: 20120201, end: 201205
  3. INTERFERON                         /05982601/ [Concomitant]
     Active Substance: INTERFERON
     Indication: RED BLOOD CELL ABNORMALITY
     Dosage: UNK
     Route: 050

REACTIONS (22)
  - Gastrointestinal haemorrhage [Unknown]
  - Hepatic cancer [Unknown]
  - Anaemia [Unknown]
  - Diarrhoea [Unknown]
  - Neck injury [Unknown]
  - Liver transplant [Unknown]
  - Hepatitis C [Unknown]
  - Thyroid disorder [Unknown]
  - Osteoarthritis [Unknown]
  - Spinal compression fracture [Unknown]
  - Stomatitis [Unknown]
  - Pain [Unknown]
  - Vomiting [Unknown]
  - Burning sensation [Unknown]
  - Drug ineffective [Unknown]
  - Back disorder [Unknown]
  - Coronary artery occlusion [Unknown]
  - Myocardial infarction [Unknown]
  - Hypertension [Unknown]
  - Ascites [Unknown]
  - Nausea [Unknown]
  - Arthritis [Unknown]

NARRATIVE: CASE EVENT DATE: 2017
